FAERS Safety Report 5526065-1 (Version None)
Quarter: 2007Q4

REPORT INFORMATION
  Report Type: 
  Country: None (occurrence: None)
  Receive Date: 20071126
  Receipt Date: 20071108
  Transmission Date: 20080405
  Serious: Yes (Hospitalization)
  Sender: FDA-Public Use
  Company Number: US-GENENTECH-251746

PATIENT
  Age: 41 Year
  Sex: Female

DRUGS (4)
  1. TRASTUZUMAB [Suspect]
     Indication: BREAST CANCER METASTATIC
     Dosage: 8 MG/KG, SINGLE
     Route: 042
     Dates: start: 20070921
  2. TRASTUZUMAB [Suspect]
     Dosage: 6 MG/KG, Q3W
     Route: 042
  3. CAPECITABINE [Suspect]
     Indication: BREAST CANCER METASTATIC
     Dosage: 825 MG/M2, D1-14/Q3W
     Route: 048
     Dates: start: 20070921
  4. VINORELBINE [Suspect]
     Indication: BREAST CANCER METASTATIC
     Dosage: 25 MG/KG, UNK
     Route: 042
     Dates: start: 20070921

REACTIONS (5)
  - ANOREXIA [None]
  - DEHYDRATION [None]
  - FATIGUE [None]
  - FEBRILE NEUTROPENIA [None]
  - NAUSEA [None]
